FAERS Safety Report 6060207-7 (Version None)
Quarter: 2009Q1

REPORT INFORMATION
  Report Type: 
  Country: None (occurrence: None)
  Receive Date: 20090128
  Receipt Date: 20090121
  Transmission Date: 20090719
  Serious: Yes (Hospitalization)
  Sender: FDA-Public Use
  Company Number: 2009SP000190

PATIENT
  Age: 73 Year
  Sex: Male

DRUGS (13)
  1. LUNESTA [Suspect]
     Indication: MIDDLE INSOMNIA
     Dosage: SEE IMAGE
     Route: 048
     Dates: end: 20070401
  2. LUNESTA [Suspect]
     Indication: MIDDLE INSOMNIA
     Dosage: SEE IMAGE
     Route: 048
     Dates: end: 20081201
  3. LUNESTA [Suspect]
     Indication: MIDDLE INSOMNIA
     Dosage: SEE IMAGE
     Route: 048
     Dates: start: 20081201, end: 20090101
  4. LUNESTA [Suspect]
     Indication: MIDDLE INSOMNIA
     Dosage: SEE IMAGE
     Route: 048
     Dates: start: 20081201, end: 20090101
  5. LUNESTA [Suspect]
     Indication: MIDDLE INSOMNIA
     Dosage: SEE IMAGE
     Route: 048
     Dates: start: 20090101
  6. CLONIDINE HCL [Concomitant]
  7. LISINOPRIL [Concomitant]
  8. NORVASC [Concomitant]
  9. NIACIN [Concomitant]
  10. SOTALOL [Concomitant]
  11. LIPITOR [Concomitant]
  12. LASIX [Concomitant]
  13. COUMADIN [Concomitant]

REACTIONS (4)
  - DRUG INEFFECTIVE [None]
  - ECONOMIC PROBLEM [None]
  - MIDDLE INSOMNIA [None]
  - MITRAL VALVE REPLACEMENT [None]
